FAERS Safety Report 14014380 (Version 1)
Quarter: 2017Q3

REPORT INFORMATION
  Report Type: Spontaneous
  Country: US (occurrence: US)
  Receive Date: 20170926
  Receipt Date: 20170926
  Transmission Date: 20171128
  Serious: Yes (Life-Threatening, Hospitalization, Disabling, Other)
  Sender: FDA-Public Use
  Company Number: None

PATIENT
  Sex: Female
  Weight: 96.75 kg

DRUGS (22)
  1. ERGOCALCIFEROL. [Concomitant]
     Active Substance: ERGOCALCIFEROL
  2. LINZESS [Concomitant]
     Active Substance: LINACLOTIDE
  3. WELCHOL [Concomitant]
     Active Substance: COLESEVELAM HYDROCHLORIDE
  4. PRADAXA [Suspect]
     Active Substance: DABIGATRAN ETEXILATE MESYLATE
     Indication: ATRIAL FIBRILLATION
     Dosage: ?          QUANTITY:1 CAPSULE(S);?
     Route: 048
     Dates: start: 20160506, end: 20160528
  5. METHOCARBAMOL. [Concomitant]
     Active Substance: METHOCARBAMOL
  6. ZOLPIDEM [Concomitant]
     Active Substance: ZOLPIDEM\ZOLPIDEM TARTRATE
  7. OCCUVITE [Concomitant]
  8. SUPER B COMPLEX [Concomitant]
     Active Substance: CYANOCOBALAMIN\DEXPANTHENOL\NIACINAMIDE\PYRIDOXINE HYDROCHLORIDE\RIBOFLAVIN 5^-PHOSPHATE SODIUM\THIAMINE HYDROCHLORIDE\VITAMIN B COMPLEX
  9. CALCIUM/VIT D [Concomitant]
  10. DOCUSATE SODIUM. [Concomitant]
     Active Substance: DOCUSATE SODIUM
  11. LASIX [Concomitant]
     Active Substance: FUROSEMIDE
  12. METOPROLOL. [Concomitant]
     Active Substance: METOPROLOL
  13. LEVOTHYROXINE. [Concomitant]
     Active Substance: LEVOTHYROXINE
  14. FLECAINIDE [Concomitant]
     Active Substance: FLECAINIDE
  15. TRAMADOL. [Concomitant]
     Active Substance: TRAMADOL
  16. MELATONIN [Concomitant]
     Active Substance: MELATONIN
  17. WOMEN OVER 50 MVI [Concomitant]
  18. METFORMIN [Concomitant]
     Active Substance: METFORMIN HYDROCHLORIDE
  19. POTASSIUM [Concomitant]
     Active Substance: POTASSIUM
  20. GABAPENTIN. [Concomitant]
     Active Substance: GABAPENTIN
  21. LIQUID FLEETS GLYCERIN [Concomitant]
  22. PRAMPEXIPOLE [Concomitant]

REACTIONS (10)
  - Thrombotic thrombocytopenic purpura [None]
  - Headache [None]
  - Wound [None]
  - Burning sensation [None]
  - Visual impairment [None]
  - Dry eye [None]
  - Muscular weakness [None]
  - Dry mouth [None]
  - Fall [None]
  - Impaired healing [None]

NARRATIVE: CASE EVENT DATE: 20160603
